FAERS Safety Report 22006000 (Version 1)
Quarter: 2023Q1

REPORT INFORMATION
  Report Type: Spontaneous
  Country: US (occurrence: US)
  Receive Date: 20230217
  Receipt Date: 20230217
  Transmission Date: 20230418
  Serious: Yes (Other)
  Sender: FDA-Public Use
  Company Number: US-JNJFOC-20230227552

PATIENT
  Age: 87 Year
  Sex: Male

DRUGS (1)
  1. XARELTO [Suspect]
     Active Substance: RIVAROXABAN
     Indication: Product used for unknown indication
     Dosage: THE LOWEST DOSE IS, THEY SAID IT WAS A VERY VERY LOW DOSE.
     Route: 048
     Dates: start: 20230205, end: 20230206

REACTIONS (3)
  - Ulcer haemorrhage [Unknown]
  - Contusion [Unknown]
  - Vein collapse [Unknown]
